FAERS Safety Report 16297181 (Version 6)
Quarter: 2020Q3

REPORT INFORMATION
  Report Type: Spontaneous
  Country: CA (occurrence: CA)
  Receive Date: 20190510
  Receipt Date: 20200721
  Transmission Date: 20201102
  Serious: Yes (Other)
  Sender: FDA-Public Use
  Company Number: CA-TEVA-2019-CA-1046473

PATIENT
  Age: 49 Year
  Sex: Female

DRUGS (23)
  1. LETROZOLE. [Suspect]
     Active Substance: LETROZOLE
     Route: 065
  2. LETROZOLE. [Suspect]
     Active Substance: LETROZOLE
     Indication: BREAST CANCER
     Route: 065
  3. PALBOCICLIB [Suspect]
     Active Substance: PALBOCICLIB
     Indication: BREAST CANCER
     Route: 065
  4. LETROZOLE. [Suspect]
     Active Substance: LETROZOLE
     Route: 065
  5. PACLITAXEL. [Suspect]
     Active Substance: PACLITAXEL
     Indication: BREAST CANCER
     Dosage: LIQUID INTRAVENOUS
     Route: 042
  6. CAPECITABINE. [Suspect]
     Active Substance: CAPECITABINE
     Indication: BREAST CANCER
     Route: 048
  7. IBRANCE [Suspect]
     Active Substance: PALBOCICLIB
     Indication: BREAST CANCER
     Route: 065
  8. FULVESTRANT INJECTION SINGLE USE PREFILLED SYRINGES [Suspect]
     Active Substance: FULVESTRANT
     Indication: BREAST CANCER
     Route: 005
  9. ERIBULIN MESILATE [Suspect]
     Active Substance: ERIBULIN
     Indication: BREAST CANCER
     Route: 065
  10. APO?LETROZOLE [Suspect]
     Active Substance: LETROZOLE
     Route: 065
  11. CLODRONIC ACID [Suspect]
     Active Substance: CLODRONIC ACID
     Indication: BREAST CANCER
     Route: 065
  12. XELODA [Suspect]
     Active Substance: CAPECITABINE
     Indication: BREAST CANCER
     Route: 065
  13. APO?LETROZOLE [Suspect]
     Active Substance: LETROZOLE
     Indication: BREAST CANCER
     Route: 065
  14. LETROZOLE. [Suspect]
     Active Substance: LETROZOLE
     Route: 065
  15. FULVESTRANT INJECTION SINGLE USE PREFILLED SYRINGES [Suspect]
     Active Substance: FULVESTRANT
     Route: 065
  16. CAPECITABINE. [Suspect]
     Active Substance: CAPECITABINE
     Route: 065
  17. LETROZOLE. [Suspect]
     Active Substance: LETROZOLE
     Route: 065
  18. CLODRONIC ACID [Suspect]
     Active Substance: CLODRONIC ACID
     Route: 065
  19. ERIBULIN MESILATE [Suspect]
     Active Substance: ERIBULIN
     Route: 065
  20. XELODA [Suspect]
     Active Substance: CAPECITABINE
     Route: 048
  21. TAMOXIFEN [Suspect]
     Active Substance: TAMOXIFEN
     Indication: BREAST CANCER
     Route: 065
  22. APO?LETROZOLE [Suspect]
     Active Substance: LETROZOLE
     Route: 065
  23. APO?TAMOX TAB 10MG [Suspect]
     Active Substance: TAMOXIFEN CITRATE
     Indication: BREAST CANCER
     Route: 065

REACTIONS (14)
  - Headache [Unknown]
  - Meningoencephalitis herpetic [Unknown]
  - Metastases to liver [Unknown]
  - Metastases to central nervous system [Unknown]
  - Platelet count decreased [Unknown]
  - White blood cell count increased [Unknown]
  - Breast cancer [Unknown]
  - Metastases to eye [Unknown]
  - Protein total increased [Unknown]
  - Herpes simplex encephalitis [Unknown]
  - Asthenia [Unknown]
  - Immunosuppression [Unknown]
  - Malignant neoplasm progression [Unknown]
  - Neoplasm progression [Unknown]
